FAERS Safety Report 5895083-6 (Version None)
Quarter: 2008Q3

REPORT INFORMATION
  Report Type: 
  Country: None (occurrence: None)
  Receive Date: 20080924
  Receipt Date: 20080911
  Transmission Date: 20090109
  Serious: Yes (Other)
  Sender: FDA-Public Use
  Company Number: CL-PFIZER INC-2008074463

PATIENT
  Sex: Female

DRUGS (3)
  1. CHANTIX [Suspect]
     Indication: SMOKING CESSATION THERAPY
     Route: 048
     Dates: start: 20080101, end: 20080501
  2. CHANTIX [Suspect]
     Route: 048
     Dates: start: 20080101, end: 20080501
  3. VALPROIC ACID [Concomitant]
     Indication: DEPRESSION
     Dates: start: 19980101

REACTIONS (2)
  - CHEYNE-STOKES RESPIRATION [None]
  - POOR QUALITY SLEEP [None]
